FAERS Safety Report 26007483 (Version 3)
Quarter: 2025Q4

REPORT INFORMATION
  Report Type: Spontaneous
  Country: CN (occurrence: CN)
  Receive Date: 20251106
  Receipt Date: 20251202
  Transmission Date: 20260117
  Serious: Yes (Hospitalization, Other)
  Sender: NOVO NORDISK
  Company Number: CN-NOVOPROD-1552144

PATIENT
  Age: 59 Year
  Sex: Male
  Weight: 74.5 kg

DRUGS (20)
  1. OZEMPIC [Suspect]
     Active Substance: SEMAGLUTIDE
     Indication: Type 2 diabetes mellitus
     Dosage: 0.25 MG, QW
     Route: 058
     Dates: start: 20250326, end: 20250416
  2. OZEMPIC [Suspect]
     Active Substance: SEMAGLUTIDE
     Dosage: 0.5 MG, QW
     Route: 058
     Dates: start: 20250423, end: 20250514
  3. OZEMPIC [Suspect]
     Active Substance: SEMAGLUTIDE
     Indication: Type 2 diabetes mellitus
     Dosage: 1 MG, QW
     Route: 058
     Dates: start: 20250523, end: 20251011
  4. METOPROLOL TARTRATE [Concomitant]
     Active Substance: METOPROLOL TARTRATE
     Indication: Sinus tachycardia
     Dosage: 25 MG, BID
     Dates: start: 20250906
  5. GINKGO [Concomitant]
     Active Substance: GINKGO
     Dosage: 35 MG, QD
     Route: 042
     Dates: start: 20251010, end: 20251022
  6. METHYLCOBALAMIN [Concomitant]
     Active Substance: METHYLCOBALAMIN
     Dosage: 0.5 MG, TID
     Route: 048
     Dates: start: 20251010
  7. VITAMIN B1 [Concomitant]
     Active Substance: THIAMINE HYDROCHLORIDE
     Dosage: 0.1 G, QD
     Route: 030
     Dates: start: 20251012
  8. CYANOCOBALAMIN [Concomitant]
     Active Substance: CYANOCOBALAMIN
     Dosage: 0.5 MG, QD
     Route: 030
     Dates: start: 20251012
  9. CLINDAMYCIN PHOSPHATE [Concomitant]
     Active Substance: CLINDAMYCIN PHOSPHATE
     Dosage: 0.6 G, BID
     Route: 042
     Dates: start: 20251010, end: 20251015
  10. ANISODINE [Concomitant]
     Dosage: PERIBULBAR INJECTIONS, ONE VIAL EACH TIME
     Dates: start: 20251010, end: 20251024
  11. CARTEOLOL HYDROCHLORIDE [Concomitant]
     Active Substance: CARTEOLOL HYDROCHLORIDE
     Indication: Vision blurred
     Dosage: 0.1 ML, BID
     Dates: start: 20251011
  12. ESOMEPRAZOLE MAGNESIUM [Concomitant]
     Active Substance: ESOMEPRAZOLE MAGNESIUM
     Indication: Gastrooesophageal reflux disease
     Dosage: 20 MG, QD
     Route: 048
     Dates: start: 20251027
  13. ESOMEPRAZOLE MAGNESIUM [Concomitant]
     Active Substance: ESOMEPRAZOLE MAGNESIUM
     Indication: Chronic gastritis
  14. TEPRENONE [Concomitant]
     Active Substance: TEPRENONE
     Indication: Gastrooesophageal reflux disease
     Dosage: 50 MG, TID
     Route: 048
  15. TEPRENONE [Concomitant]
     Active Substance: TEPRENONE
     Indication: Chronic gastritis
  16. FLUMAZENIL [Concomitant]
     Active Substance: FLUMAZENIL
     Dosage: 0.2MG ONCE
     Route: 042
     Dates: start: 20251020, end: 20251020
  17. REMIMAZOLAM BESYLATE [Concomitant]
     Active Substance: REMIMAZOLAM BESYLATE
     Dosage: 36MG ONCE
     Route: 042
     Dates: start: 20251020, end: 20251020
  18. TROPISETRON HYDROCHLORIDE [Concomitant]
     Active Substance: TROPISETRON HYDROCHLORIDE
     Dosage: 5MG ONCE
     Route: 042
     Dates: start: 20251020, end: 20251020
  19. ITOPRIDE [Concomitant]
     Active Substance: ITOPRIDE
     Indication: Gastrooesophageal reflux disease
     Dosage: 50 MG, TID
     Route: 048
     Dates: start: 20251027
  20. ITOPRIDE [Concomitant]
     Active Substance: ITOPRIDE
     Indication: Chronic gastritis

REACTIONS (3)
  - Optic neuritis [Recovering/Resolving]
  - Decreased appetite [Recovered/Resolved]
  - Abdominal distension [Recovered/Resolved]

NARRATIVE: CASE EVENT DATE: 20250523
